FAERS Safety Report 7492951-9 (Version None)
Quarter: 2011Q2

REPORT INFORMATION
  Report Type: 
  Country: None (occurrence: None)
  Receive Date: 20110520
  Receipt Date: 20110506
  Transmission Date: 20111010
  Serious: Yes (Other)
  Sender: FDA-Public Use
  Company Number: US-RANBAXY-2011RR-44504

PATIENT
  Sex: Female
  Weight: 86 kg

DRUGS (14)
  1. LIALDA [Concomitant]
     Dosage: 2.4-4.8GM PER DAY
  2. REMICADE [Suspect]
     Indication: COLITIS ULCERATIVE
     Dosage: 430 MG, 1 IN 8 WEEKS
     Route: 042
     Dates: start: 20101101
  3. PROTONIX [Concomitant]
     Indication: BLOOD CHOLESTEROL
     Dosage: 40 MG, QD
     Route: 048
  4. ALUMINUM HYDROXIDE TAB [Concomitant]
     Dosage: 600 MG, PRN
  5. FISH OIL [Concomitant]
     Dosage: 1000 MG, BID
  6. PREDNISOLONE [Suspect]
     Indication: COLITIS ULCERATIVE
     Dosage: 10 MG, QD
  7. CITRUCEL [Concomitant]
     Dosage: 1000 MG, Q1H
  8. LEVAQUIN [Suspect]
     Indication: BRONCHITIS
     Dosage: 750 MG, QD
     Route: 048
     Dates: start: 20101201
  9. CALCIUM CARBONATE [Concomitant]
     Dosage: 500 MG, PRN
  10. XANAX [Concomitant]
     Indication: SLEEP DISORDER
     Dosage: 0.25 MG, Q1H
  11. NITROGLYCERIN [Concomitant]
     Indication: ANAL FISSURE
     Route: 061
  12. PREDNISOLONE [Suspect]
     Dosage: 5 MG, QD
     Dates: end: 20110101
  13. ZOCOR [Suspect]
     Indication: BLOOD CHOLESTEROL
     Dosage: 20 MG, QD
     Route: 048
  14. IBUPROFEN [Concomitant]
     Dosage: 200 MG, PRN

REACTIONS (15)
  - ARTHRALGIA [None]
  - OROPHARYNGEAL PAIN [None]
  - INSOMNIA [None]
  - PAIN IN EXTREMITY [None]
  - OEDEMA PERIPHERAL [None]
  - SINUS CONGESTION [None]
  - COLITIS ULCERATIVE [None]
  - HAEMOGLOBIN DECREASED [None]
  - RHINORRHOEA [None]
  - JOINT STIFFNESS [None]
  - BRONCHITIS [None]
  - MUSCULOSKELETAL STIFFNESS [None]
  - DIARRHOEA [None]
  - NAUSEA [None]
  - MYALGIA [None]
